FAERS Safety Report 9219304 (Version 1)
Quarter: 2013Q2

REPORT INFORMATION
  Report Type: Spontaneous
  Country: US (occurrence: None)
  Receive Date: 20130408
  Receipt Date: 20130408
  Transmission Date: 20140414
  Serious: Yes (Death)
  Sender: FDA-Public Use
  Company Number: None

PATIENT
  Age: 66 Year
  Sex: Male

DRUGS (1)
  1. BELATACEPT [Suspect]
     Indication: PROPHYLAXIS AGAINST TRANSPLANT REJECTION
     Route: 042
     Dates: start: 20130121

REACTIONS (6)
  - Acute myocardial infarction [None]
  - Acinetobacter infection [None]
  - Pneumonia [None]
  - Enterococcal bacteraemia [None]
  - Respiratory failure [None]
  - Sepsis [None]
